FAERS Safety Report 6254699-8 (Version None)
Quarter: 2009Q3

REPORT INFORMATION
  Report Type: 
  Country: None (occurrence: None)
  Receive Date: 20090702
  Receipt Date: 20090623
  Transmission Date: 20100115
  Serious: Yes (Life-Threatening, Hospitalization)
  Sender: FDA-Public Use
  Company Number: FR-PFIZER INC-2009230669

PATIENT
  Age: 59 Year

DRUGS (11)
  1. ALDACTONE [Suspect]
     Route: 048
  2. METFORMIN ^ALPHARMA^ [Suspect]
     Dosage: 2550 MG, 1X/DAY
     Route: 048
     Dates: start: 19990101, end: 20090227
  3. TRIATEC [Suspect]
     Route: 048
  4. LASIX [Concomitant]
     Route: 048
  5. TAHOR [Concomitant]
  6. BISOPROLOL [Concomitant]
  7. AMLODIPINE [Concomitant]
  8. ASPEGIC 1000 [Concomitant]
  9. IKOREL [Concomitant]
  10. PREVISCAN [Concomitant]
  11. CORDARONE [Concomitant]

REACTIONS (1)
  - LACTIC ACIDOSIS [None]
